FAERS Safety Report 13891879 (Version 1)
Quarter: 2017Q3

REPORT INFORMATION
  Report Type: Spontaneous
  Country: US (occurrence: US)
  Receive Date: 20170822
  Receipt Date: 20170822
  Transmission Date: 20171127
  Serious: No
  Sender: FDA-Public Use
  Company Number: US-PFIZER INC-2017359246

PATIENT
  Age: 77 Year
  Sex: Female

DRUGS (1)
  1. NORVASC [Suspect]
     Active Substance: AMLODIPINE BESYLATE
     Dosage: UNK

REACTIONS (6)
  - Joint swelling [Unknown]
  - Tenderness [Unknown]
  - Arthralgia [Unknown]
  - Red blood cell sedimentation rate [Unknown]
  - Fatigue [Unknown]
  - Musculoskeletal stiffness [Unknown]
